FAERS Safety Report 6218730-8 (Version None)
Quarter: 2009Q2

REPORT INFORMATION
  Report Type: 
  Country: None (occurrence: None)
  Receive Date: 20090608
  Receipt Date: 20090526
  Transmission Date: 20091009
  Serious: Yes (Hospitalization)
  Sender: FDA-Public Use
  Company Number: US-ELI_LILLY_AND_COMPANY-US200905005977

PATIENT
  Sex: Female
  Weight: 136.5 kg

DRUGS (7)
  1. BYETTA [Suspect]
     Indication: TYPE 2 DIABETES MELLITUS
     Dosage: 5 UG, 2/D
     Route: 058
     Dates: start: 20080501
  2. XANAX [Concomitant]
     Indication: ANXIETY
     Dates: start: 19890101
  3. ZOLOFT [Concomitant]
     Indication: DEPRESSION
     Dates: start: 19890101
  4. LIPITOR [Concomitant]
     Indication: BLOOD CHOLESTEROL INCREASED
     Dates: start: 19990101
  5. LISINOPRIL [Concomitant]
     Indication: BLOOD PRESSURE INCREASED
     Dates: start: 19990101
  6. LANTUS [Concomitant]
     Indication: TYPE 2 DIABETES MELLITUS
     Dosage: 90 U, 2/D
     Route: 058
  7. HUMULIN R [Concomitant]
     Indication: TYPE 2 DIABETES MELLITUS
     Dosage: UNK, AS NEEDED
     Route: 058

REACTIONS (6)
  - BLOOD GLUCOSE DECREASED [None]
  - BLOOD GLUCOSE INCREASED [None]
  - MEMORY IMPAIRMENT [None]
  - MENTAL DISORDER [None]
  - PYREXIA [None]
  - SUICIDAL IDEATION [None]
